FAERS Safety Report 21009673 (Version 1)
Quarter: 2022Q2

REPORT INFORMATION
  Report Type: Spontaneous
  Country: US (occurrence: US)
  Receive Date: 20220627
  Receipt Date: 20220627
  Transmission Date: 20220720
  Serious: No
  Sender: FDA-Public Use
  Company Number: US-BRISTOL-MYERS SQUIBB COMPANY-2022-062163

PATIENT
  Age: 76 Year
  Sex: Male

DRUGS (2)
  1. ORENCIA [Suspect]
     Active Substance: ABATACEPT
     Indication: Product used for unknown indication
     Route: 058
  2. COVID-19 VACCINE [Concomitant]
     Indication: Immunisation
     Dosage: BOOSTER SHOT
     Route: 065

REACTIONS (1)
  - Intentional product use issue [Unknown]
